FAERS Safety Report 13264190 (Version 1)
Quarter: 2017Q1

REPORT INFORMATION
  Report Type: Spontaneous
  Country: US (occurrence: US)
  Receive Date: 20170222
  Receipt Date: 20170222
  Transmission Date: 20170428
  Serious: No
  Sender: FDA-Public Use
  Company Number: None

PATIENT
  Age: 59 Year
  Sex: Female
  Weight: 79 kg

DRUGS (1)
  1. INSULIN [Suspect]
     Active Substance: INSULIN NOS
     Indication: DIABETES MELLITUS
     Dosage: 10 UNITS EVERY DAY SQ
     Route: 058
     Dates: start: 20160520, end: 20160811

REACTIONS (9)
  - Diarrhoea [None]
  - Blood glucose increased [None]
  - Abdominal distension [None]
  - Vomiting [None]
  - Dizziness [None]
  - Nausea [None]
  - Palpitations [None]
  - Malaise [None]
  - Mobility decreased [None]

NARRATIVE: CASE EVENT DATE: 20160811
